FAERS Safety Report 15622718 (Version 1)
Quarter: 2018Q4

REPORT INFORMATION
  Report Type: Report from Study
  Country: US (occurrence: US)
  Receive Date: 20181115
  Receipt Date: 20181115
  Transmission Date: 20190205
  Serious: Yes (Death)
  Sender: FDA-Public Use
  Company Number: US-ACTELION-A-NJ2018-173778

PATIENT
  Age: 23 Year
  Sex: Female
  Weight: 52.15 kg

DRUGS (15)
  1. RAMIPRIL. [Concomitant]
     Active Substance: RAMIPRIL
  2. OPSUMIT [Suspect]
     Active Substance: MACITENTAN
     Indication: PULMONARY ARTERIAL HYPERTENSION
     Dosage: UNK
     Route: 048
  3. ARIPIPRAZOLE. [Concomitant]
     Active Substance: ARIPIPRAZOLE
  4. DIGOX [Concomitant]
     Active Substance: DIGOXIN
  5. POTASSIUM CHLORIDE. [Concomitant]
     Active Substance: POTASSIUM CHLORIDE
  6. FLUOXETINE [Concomitant]
     Active Substance: FLUOXETINE HYDROCHLORIDE
  7. UPTRAVI [Suspect]
     Active Substance: SELEXIPAG
     Indication: PULMONARY ARTERIAL HYPERTENSION
     Dosage: 200 MCG, BID
     Route: 048
  8. DOK [Concomitant]
     Active Substance: DOCUSATE SODIUM
  9. XARELTO [Concomitant]
     Active Substance: RIVAROXABAN
  10. TORSEMIDE. [Concomitant]
     Active Substance: TORSEMIDE
  11. VENLAFAXINE [Concomitant]
     Active Substance: VENLAFAXINE HYDROCHLORIDE
  12. OPSUMIT [Suspect]
     Active Substance: MACITENTAN
     Dosage: 10 MG, QD
     Route: 048
     Dates: start: 20161020, end: 20181103
  13. ADCIRCA [Concomitant]
     Active Substance: TADALAFIL
  14. CARVEDILOL. [Concomitant]
     Active Substance: CARVEDILOL
  15. SPIRONOLACTONE. [Concomitant]
     Active Substance: SPIRONOLACTONE

REACTIONS (3)
  - Death [Fatal]
  - Vomiting [Unknown]
  - Diarrhoea [Unknown]

NARRATIVE: CASE EVENT DATE: 20181103
